FAERS Safety Report 8459767 (Version 2)
Quarter: 2015Q1

REPORT INFORMATION
  Report Type: Spontaneous
  Country: US (occurrence: US)
  Receive Date: 20120314
  Receipt Date: 20150331
  Transmission Date: 20150721
  Serious: Yes (Other)
  Sender: FDA-Public Use
  Company Number: US-ASTRAZENECA-2011SE65445

PATIENT
  Age: 70 Year
  Sex: Female
  Weight: 107 kg

DRUGS (5)
  1. TOPROL XL [Suspect]
     Active Substance: METOPROLOL SUCCINATE
     Indication: HYPERTENSION
     Route: 048
     Dates: start: 2003
  2. TOPROL XL [Suspect]
     Active Substance: METOPROLOL SUCCINATE
     Indication: HYPERTENSION
     Dosage: 50 MG, TWO TOPROL XL TABLETS IN THE MORNING AND TWO IN THE EVENING
     Route: 048
     Dates: start: 2003
  3. CRESTOR [Suspect]
     Active Substance: ROSUVASTATIN CALCIUM
     Indication: BLOOD TRIGLYCERIDES INCREASED
     Route: 048
     Dates: start: 2005
  4. COUMADIN [Concomitant]
     Active Substance: WARFARIN SODIUM
     Indication: CARDIAC OPERATION
  5. CRESTOR [Suspect]
     Active Substance: ROSUVASTATIN CALCIUM
     Indication: BLOOD CHOLESTEROL INCREASED
     Route: 048
     Dates: start: 2005

REACTIONS (7)
  - Fibula fracture [Unknown]
  - Chronic obstructive pulmonary disease [Unknown]
  - Limb injury [Unknown]
  - Off label use [Not Recovered/Not Resolved]
  - Tibia fracture [Unknown]
  - Influenza [Unknown]
  - Road traffic accident [Unknown]

NARRATIVE: CASE EVENT DATE: 2003
